FAERS Safety Report 13700671 (Version 1)
Quarter: 2017Q2

REPORT INFORMATION
  Report Type: Spontaneous
  Country: PL (occurrence: PL)
  Receive Date: 20170629
  Receipt Date: 20170629
  Transmission Date: 20170830
  Serious: Yes (Other)
  Sender: FDA-Public Use
  Company Number: PL-ASTRAZENECA-2017SE66465

PATIENT
  Age: 69 Year
  Sex: Female
  Weight: 94 kg

DRUGS (11)
  1. FUROSEMIDE. [Concomitant]
     Active Substance: FUROSEMIDE
     Dosage: 40 MG 1X1
  2. EPLERENONE. [Concomitant]
     Active Substance: EPLERENONE
     Dosage: 50 MG 1X1
  3. HUMULIN N [Concomitant]
     Active Substance: INSULIN HUMAN
     Dosage: 30 U AT 10:00 PM
  4. FORXIGA [Suspect]
     Active Substance: DAPAGLIFLOZIN
     Route: 048
     Dates: start: 201505
  5. ROSUVASTATIN. [Concomitant]
     Active Substance: ROSUVASTATIN
     Dosage: 20 MG 1X1
  6. PRINIVIL [Concomitant]
     Active Substance: LISINOPRIL
     Dosage: 20 1X1
  7. METFORMAX [Concomitant]
     Active Substance: METFORMIN HYDROCHLORIDE
     Dosage: 850, 3X1 WITH MEAN MEALS
  8. FORXIGA [Suspect]
     Active Substance: DAPAGLIFLOZIN
  9. ACARD [Concomitant]
     Active Substance: ASPIRIN
     Dosage: 75 MG 1X1
  10. BETALOC ZOK [Concomitant]
     Active Substance: METOPROLOL SUCCINATE
     Dosage: 1X1
  11. HUMALOG [Concomitant]
     Active Substance: INSULIN LISPRO
     Dosage: 20-24 U BEFORE BREAKFAST, 25-28 U BEFORE DINNER, 20-22 U BEFORE SUPPER

REACTIONS (14)
  - Dyspnoea exertional [Unknown]
  - Dizziness [Unknown]
  - Oedema peripheral [Unknown]
  - Urinary tract inflammation [Unknown]
  - Upper respiratory tract infection [Unknown]
  - Lung disorder [Unknown]
  - Cerebrovascular accident [Unknown]
  - Angina pectoris [Unknown]
  - Blood thyroid stimulating hormone decreased [Unknown]
  - Necrobiosis lipoidica diabeticorum [Unknown]
  - Exercise tolerance decreased [Unknown]
  - Palpitations [Unknown]
  - Chest pain [Unknown]
  - Hypoglycaemia [Unknown]

NARRATIVE: CASE EVENT DATE: 201508
